FAERS Safety Report 20652166 (Version 2)
Quarter: 2022Q2

REPORT INFORMATION
  Report Type: Spontaneous
  Country: NP (occurrence: NP)
  Receive Date: 20220330
  Receipt Date: 20220419
  Transmission Date: 20220721
  Serious: Yes (Congenital Anomaly, Other)
  Sender: FDA-Public Use
  Company Number: NP-SUN PHARMACEUTICAL INDUSTRIES LTD-2022R1-330987

PATIENT
  Sex: Male
  Weight: 3.5 kg

DRUGS (1)
  1. OLANZAPINE [Suspect]
     Active Substance: OLANZAPINE
     Indication: Schizophrenia
     Dosage: UNK (10 MG)
     Route: 064

REACTIONS (2)
  - Foetal exposure during pregnancy [Unknown]
  - Talipes [Unknown]
